FAERS Safety Report 8962601 (Version 2)
Quarter: 2012Q4

REPORT INFORMATION
  Report Type: 
  Country: JP (occurrence: JP)
  Receive Date: 20121214
  Receipt Date: 20121228
  Transmission Date: 20130627
  Serious: Yes (Hospitalization, Other)
  Sender: FDA-Public Use
  Company Number: JP-NOVOPROD-366186

PATIENT
  Age: 30 Year
  Sex: Female
  Weight: 53 kg

DRUGS (6)
  1. NOVOLIN N [Suspect]
     Indication: DIABETES MELLITUS
     Dosage: 14 IU, qd
     Route: 058
     Dates: start: 20100715
  2. HUMALOG [Suspect]
     Indication: DIABETES MELLITUS
     Dosage: 12 IU, qd
     Route: 058
     Dates: start: 20100715
  3. FERROMIA [Concomitant]
     Indication: ANAEMIA
     Dosage: 100 mg, qd
     Route: 048
     Dates: start: 20100715, end: 20101108
  4. FOLIAMIN [Concomitant]
     Indication: ANAEMIA
     Dosage: 15 mg, qd
     Route: 048
     Dates: start: 20100715, end: 20101108
  5. UTEMERIN [Concomitant]
     Indication: THREATENED LABOUR
     Dosage: 15 mg, qd
     Route: 048
     Dates: start: 20100712, end: 20101108
  6. METHYCOBAL [Concomitant]
     Indication: ANAEMIA
     Dosage: 1500 ?g, qd
     Route: 048
     Dates: start: 20100715, end: 20101108

REACTIONS (3)
  - Foetal growth restriction [Unknown]
  - Diabetes mellitus inadequate control [Recovered/Resolved]
  - Exposure during pregnancy [Recovered/Resolved]
